FAERS Safety Report 16217545 (Version 1)
Quarter: 2019Q2

REPORT INFORMATION
  Report Type: Spontaneous
  Country: US (occurrence: US)
  Receive Date: 20190419
  Receipt Date: 20190419
  Transmission Date: 20190711
  Serious: No
  Sender: FDA-Public Use
  Company Number: US-SA-2019SA103555

PATIENT
  Sex: Male

DRUGS (1)
  1. HECTOROL [Suspect]
     Active Substance: DOXERCALCIFEROL
     Route: 042

REACTIONS (6)
  - Drug intolerance [Unknown]
  - Nail disorder [Unknown]
  - Eye disorder [Unknown]
  - Dry skin [Unknown]
  - Scratch [Unknown]
  - Furuncle [Unknown]
